FAERS Safety Report 18724416 (Version 1)
Quarter: 2021Q1

REPORT INFORMATION
  Report Type: Spontaneous
  Country: US (occurrence: US)
  Receive Date: 20210110
  Receipt Date: 20210110
  Transmission Date: 20210419
  Serious: No
  Sender: FDA-Public Use
  Company Number: None

PATIENT
  Age: 50 Year
  Weight: 72.9 kg

DRUGS (1)
  1. MIRENA [Suspect]
     Active Substance: LEVONORGESTREL
     Indication: CONTRACEPTION
     Route: 067
     Dates: start: 20170210

REACTIONS (8)
  - Genital rash [None]
  - Urticaria [None]
  - Scratch [None]
  - Anxiety [None]
  - Vulvovaginal pruritus [None]
  - Drug ineffective [None]
  - Pruritus genital [None]
  - Pain [None]

NARRATIVE: CASE EVENT DATE: 20170210
